FAERS Safety Report 18113689 (Version 1)
Quarter: 2020Q3

REPORT INFORMATION
  Report Type: Report from Study
  Country: IT (occurrence: IT)
  Receive Date: 20200805
  Receipt Date: 20200805
  Transmission Date: 20201103
  Serious: Yes (Hospitalization)
  Sender: FDA-Public Use
  Company Number: IT-TAKEDA-2020TUS033305

PATIENT
  Age: 19 Year
  Sex: Male

DRUGS (1)
  1. VEDOLIZUMAB [Suspect]
     Active Substance: VEDOLIZUMAB
     Indication: CROHN^S DISEASE
     Dosage: 300 MILLIGRAM
     Route: 042
     Dates: start: 20191115, end: 20191227

REACTIONS (2)
  - Skin swelling [Recovered/Resolved with Sequelae]
  - Abdominal abscess [Recovered/Resolved with Sequelae]

NARRATIVE: CASE EVENT DATE: 20191227
